FAERS Safety Report 10211749 (Version 1)
Quarter: 2014Q2

REPORT INFORMATION
  Report Type: Spontaneous
  Country: BR (occurrence: None)
  Receive Date: 20140528
  Receipt Date: 20140528
  Transmission Date: 20141212
  Serious: Yes (Other)
  Sender: FDA-Public Use
  Company Number: 2014BR003919

PATIENT
  Age: 75 Year
  Sex: Male

DRUGS (5)
  1. ELIGARD [Suspect]
     Indication: PROSTATE CANCER
     Route: 058
     Dates: start: 20140214
  2. ZOLIBBS (ZOLEDRONIC ACID) [Concomitant]
  3. CAPTOPRIL (CAPTOPRIL) (CAPTOPRIL) [Concomitant]
  4. HYDROCHLOROTHIAZIDE (HYDROCHLOROTHIAZIDE) [Concomitant]
  5. TRAMADOL (TRAMADOL) [Concomitant]

REACTIONS (5)
  - Skin exfoliation [None]
  - Urticaria [None]
  - Rash [None]
  - Pruritus [None]
  - Pruritus [None]
